FAERS Safety Report 9708437 (Version 4)
Quarter: 2013Q4

REPORT INFORMATION
  Report Type: Spontaneous
  Country: JP (occurrence: JP)
  Receive Date: 20131125
  Receipt Date: 20131219
  Transmission Date: 20140711
  Serious: Yes (Hospitalization, Disabling)
  Sender: FDA-Public Use
  Company Number: JP-PFIZER INC-2013334439

PATIENT
  Age: 65 Year
  Sex: Female
  Weight: 52 kg

DRUGS (11)
  1. ZOSYN [Suspect]
     Indication: SEPSIS
     Dosage: 4.5 MG, 2X/DAY
     Route: 041
     Dates: start: 20131105, end: 20131106
  2. ELPLAT [Suspect]
     Indication: COLORECTAL CANCER
     Dosage: 100 MG, DAILY
     Route: 041
     Dates: start: 20130311, end: 20131105
  3. JANUVIA [Concomitant]
     Indication: DIABETES MELLITUS
     Dosage: 50 MG, DAILY
     Route: 048
  4. ALOXI [Concomitant]
     Dosage: 0.75 MG/DAY
     Route: 041
     Dates: start: 20131105, end: 20131105
  5. DECADRON [Concomitant]
     Dosage: 6.6 MG/DAY
     Route: 041
     Dates: start: 20131105, end: 20131105
  6. LEVOFOLINATE [Concomitant]
     Indication: COLORECTAL CANCER
     Dosage: UNK
     Route: 041
  7. 5 FU [Concomitant]
     Indication: COLORECTAL CANCER
     Dosage: UNK
     Route: 041
     Dates: start: 20130311, end: 20131105
  8. VITAMEDIN CAPSULE [Concomitant]
     Dosage: UNK
     Route: 042
  9. PANTOSIN [Concomitant]
  10. PRIMPERAN [Concomitant]
  11. SOLDEM 3A [Concomitant]
     Indication: SEPSIS
     Dosage: 1000 ML/DAY
     Route: 041
     Dates: start: 20131105

REACTIONS (1)
  - Renal failure acute [Unknown]
